FAERS Safety Report 18468256 (Version 1)
Quarter: 2020Q4

REPORT INFORMATION
  Report Type: Spontaneous
  Country: US (occurrence: US)
  Receive Date: 20201104
  Receipt Date: 20201104
  Transmission Date: 20210114
  Serious: Yes (Other)
  Sender: FDA-Public Use
  Company Number: None

PATIENT
  Age: 66 Year
  Sex: Female
  Weight: 106.65 kg

DRUGS (15)
  1. VITAMIN D2 [Concomitant]
     Active Substance: ERGOCALCIFEROL
  2. ANASTROZOLE. [Concomitant]
     Active Substance: ANASTROZOLE
  3. PROZAC [Concomitant]
     Active Substance: FLUOXETINE HYDROCHLORIDE
  4. CALTRATE [Concomitant]
     Active Substance: CALCIUM CARBONATE
  5. SINGULAIR [Concomitant]
     Active Substance: MONTELUKAST SODIUM
  6. CYANOCOBALAMIN. [Concomitant]
     Active Substance: CYANOCOBALAMIN
  7. FLUOXETINE [Concomitant]
     Active Substance: FLUOXETINE HYDROCHLORIDE
  8. BUSPIRONE [Concomitant]
     Active Substance: BUSPIRONE HYDROCHLORIDE
  9. TIZANIDINE. [Concomitant]
     Active Substance: TIZANIDINE
  10. DEXAMETHSONE [Concomitant]
  11. LISINOPRIL. [Concomitant]
     Active Substance: LISINOPRIL
  12. ONDANSETRON [Concomitant]
     Active Substance: ONDANSETRON
  13. PIQRAY [Suspect]
     Active Substance: ALPELISIB
     Indication: BREAST CANCER
     Route: 048
     Dates: start: 20200930
  14. TRAMADOL. [Concomitant]
     Active Substance: TRAMADOL
  15. PROAIR HFA [Concomitant]
     Active Substance: ALBUTEROL SULFATE

REACTIONS (5)
  - Hot flush [None]
  - Flatulence [None]
  - Constipation [None]
  - Diarrhoea [None]
  - Abdominal pain [None]

NARRATIVE: CASE EVENT DATE: 20201104
